FAERS Safety Report 16952169 (Version 3)
Quarter: 2020Q3

REPORT INFORMATION
  Report Type: Report from Study
  Country: GB (occurrence: GB)
  Receive Date: 20191023
  Receipt Date: 20200203
  Transmission Date: 20201105
  Serious: Yes (Hospitalization, Other)
  Sender: FDA-Public Use
  Company Number: GB-ROCHE-2437358

PATIENT
  Age: 71 Year
  Sex: Male

DRUGS (12)
  1. TENOFOVIR [Concomitant]
     Active Substance: TENOFOVIR
     Dosage: OD
     Route: 048
     Dates: start: 20190812
  2. ACICLOVIR [Concomitant]
     Active Substance: ACYCLOVIR
     Route: 048
     Dates: start: 20190812
  3. COTRIMOXAZOLE [Concomitant]
     Active Substance: SULFAMETHOXAZOLE\TRIMETHOPRIM
     Dosage: OD
     Route: 048
     Dates: start: 20190812
  4. BENDAMUSTINE [Suspect]
     Active Substance: BENDAMUSTINE
     Indication: LYMPHOMA
     Route: 042
     Dates: start: 20190813, end: 20190926
  5. OXYCODONE [Concomitant]
     Active Substance: OXYCODONE
     Route: 048
     Dates: start: 20191008
  6. FLUCONAZOLE. [Concomitant]
     Active Substance: FLUCONAZOLE
     Dosage: OD
     Route: 048
     Dates: start: 20190812
  7. CARBOCYSTEINE [Concomitant]
     Active Substance: CARBOCYSTEINE
     Route: 048
     Dates: start: 20191008
  8. DUAKLIR GENUAIR [Concomitant]
     Active Substance: ACLIDINIUM BROMIDE\FORMOTEROL FUMARATE
     Indication: CHEST DISCOMFORT
     Dosage: 1 PUFF
     Route: 065
     Dates: start: 20191012
  9. RITUXIMAB. [Suspect]
     Active Substance: RITUXIMAB
     Indication: LYMPHOMA
     Route: 042
     Dates: start: 20190812, end: 20190925
  10. POLATUZUMAB VEDOTIN. [Suspect]
     Active Substance: POLATUZUMAB VEDOTIN
     Indication: LYMPHOMA
     Route: 042
     Dates: start: 20190813, end: 20190925
  11. OXYCODONE [Concomitant]
     Active Substance: OXYCODONE
     Indication: CHEST PAIN
     Route: 048
     Dates: start: 20190926
  12. FILGRASTIM [Concomitant]
     Active Substance: FILGRASTIM
     Dosage: OD
     Route: 058
     Dates: start: 20190910, end: 20190914

REACTIONS (2)
  - Chest pain [Not Recovered/Not Resolved]
  - Oesophageal carcinoma recurrent [Unknown]

NARRATIVE: CASE EVENT DATE: 20191008
